FAERS Safety Report 21913951 (Version 1)
Quarter: 2023Q1

REPORT INFORMATION
  Report Type: Spontaneous
  Country: US (occurrence: US)
  Receive Date: 20230125
  Receipt Date: 20230125
  Transmission Date: 20230417
  Serious: No
  Sender: FDA-Public Use
  Company Number: US-ALLERGAN-2224229US

PATIENT
  Age: 29 Year
  Sex: Female
  Weight: 72.574 kg

DRUGS (1)
  1. BOTOX COSMETIC [Suspect]
     Active Substance: ONABOTULINUMTOXINA
     Indication: Jaw clicking
     Dosage: 35 UNITS, SINGLE
     Route: 030
     Dates: start: 20220716, end: 20220716

REACTIONS (5)
  - Oropharyngeal pain [Recovered/Resolved]
  - Pharyngeal hypoaesthesia [Not Recovered/Not Resolved]
  - Product preparation error [Unknown]
  - Off label use [Unknown]
  - Nausea [Recovered/Resolved]

NARRATIVE: CASE EVENT DATE: 20220722
